FAERS Safety Report 11876051 (Version 1)
Quarter: 2015Q4

REPORT INFORMATION
  Report Type: Spontaneous
  Country: GB (occurrence: GB)
  Receive Date: 20151229
  Receipt Date: 20151229
  Transmission Date: 20160305
  Serious: Yes (Death, Hospitalization)
  Sender: FDA-Public Use
  Company Number: CHNY2015GB000474

PATIENT
  Age: 75 Year
  Sex: Female

DRUGS (3)
  1. FLUCONAZOLE. [Interacting]
     Active Substance: FLUCONAZOLE
     Indication: CELLULITIS
     Route: 065
  2. EXEMESTANE. [Concomitant]
     Active Substance: EXEMESTANE
     Indication: BREAST CANCER METASTATIC
     Route: 065
  3. EVEROLIMUS [Suspect]
     Active Substance: EVEROLIMUS
     Indication: BREAST CANCER METASTATIC
     Route: 065

REACTIONS (2)
  - Labelled drug-drug interaction medication error [Unknown]
  - Diarrhoea [Fatal]
